FAERS Safety Report 6025834-1 (Version None)
Quarter: 2009Q1

REPORT INFORMATION
  Report Type: 
  Country: None (occurrence: None)
  Receive Date: 20090102
  Receipt Date: 20081226
  Transmission Date: 20090719
  Serious: Yes (Other)
  Sender: FDA-Public Use
  Company Number: US-JNJFOC-20081206896

PATIENT
  Sex: Male
  Weight: 108.86 kg

DRUGS (2)
  1. FENTANYL TRANSDERMAL SYSTEM [Suspect]
     Indication: BACK PAIN
     Route: 062
  2. VICODIN [Concomitant]
     Indication: PAIN
     Route: 048

REACTIONS (7)
  - BACK PAIN [None]
  - FIBROMYALGIA [None]
  - HYPERTENSION [None]
  - HYPOTHYROIDISM [None]
  - INADEQUATE ANALGESIA [None]
  - PRODUCT QUALITY ISSUE [None]
  - SLEEP DISORDER [None]
